FAERS Safety Report 13668636 (Version 3)
Quarter: 2017Q3

REPORT INFORMATION
  Report Type: Spontaneous
  Country: US (occurrence: US)
  Receive Date: 20170620
  Receipt Date: 20170725
  Transmission Date: 20171127
  Serious: Yes (Death, Life-Threatening, Other)
  Sender: FDA-Public Use
  Company Number: US-009507513-1706USA007266

PATIENT
  Age: 67 Year
  Sex: Male

DRUGS (6)
  1. METHOTREXATE. [Suspect]
     Active Substance: METHOTREXATE
     Indication: CHEMOTHERAPY
  2. DEXAMETHASONE. [Suspect]
     Active Substance: DEXAMETHASONE
     Indication: LEPTOMENINGEAL MYELOMATOSIS
  3. CYTARABINE. [Suspect]
     Active Substance: CYTARABINE
     Indication: LEPTOMENINGEAL MYELOMATOSIS
     Dosage: UNK
  4. METHOTREXATE. [Suspect]
     Active Substance: METHOTREXATE
     Indication: LEPTOMENINGEAL MYELOMATOSIS
     Dosage: UNK
     Route: 037
  5. CYTARABINE. [Suspect]
     Active Substance: CYTARABINE
     Indication: CHEMOTHERAPY
  6. DEXAMETHASONE. [Suspect]
     Active Substance: DEXAMETHASONE
     Indication: CHEMOTHERAPY
     Dosage: UNK
     Route: 037

REACTIONS (2)
  - Leptomeningeal myelomatosis [Fatal]
  - Drug ineffective [Fatal]
